FAERS Safety Report 4709958-4 (Version None)
Quarter: 2005Q3

REPORT INFORMATION
  Report Type: 
  Country: None (occurrence: None)
  Receive Date: 20050707
  Receipt Date: 20050621
  Transmission Date: 20060218
  Serious: Yes (Hospitalization)
  Sender: FDA-Public Use
  Company Number: 2005001170

PATIENT
  Age: 49 Year
  Sex: Male
  Weight: 56.6996 kg

DRUGS (8)
  1. TARCEVA [Suspect]
     Indication: LUNG NEOPLASM MALIGNANT
     Dosage: 150MG (QD) ORAL
     Route: 048
     Dates: start: 20050501
  2. DEXAMETHASONE [Concomitant]
  3. KEPPRA [Concomitant]
  4. PREVACID [Concomitant]
  5. BACLOFEN [Concomitant]
  6. LORAZEPAM [Concomitant]
  7. VICODIN [Concomitant]
  8. MORPHINE [Concomitant]

REACTIONS (5)
  - ASTHENIA [None]
  - DYSARTHRIA [None]
  - NERVOUS SYSTEM DISORDER [None]
  - TRANSIENT ISCHAEMIC ATTACK [None]
  - TREATMENT NONCOMPLIANCE [None]
